FAERS Safety Report 6728014-7 (Version None)
Quarter: 2010Q2

REPORT INFORMATION
  Report Type: 
  Country: None (occurrence: None)
  Receive Date: 20100512
  Receipt Date: 20100426
  Transmission Date: 20101027
  Serious: Yes (Other)
  Sender: FDA-Public Use
  Company Number: 7002917

PATIENT
  Age: 44 Year
  Sex: Female

DRUGS (3)
  1. REBIF [Suspect]
     Indication: MULTIPLE SCLEROSIS
     Dosage: 44 MCG, 3 IN 1 WK, SUBCUTANEOUS
     Route: 058
     Dates: start: 20090522
  2. BACLOFEN [Concomitant]
  3. NEURONTIN [Concomitant]

REACTIONS (3)
  - BIPOLAR DISORDER [None]
  - FIBROMYALGIA [None]
  - SLEEP DISORDER [None]
